FAERS Safety Report 5725654-9 (Version None)
Quarter: 2008Q2

REPORT INFORMATION
  Report Type: 
  Country: None (occurrence: None)
  Receive Date: 20080501
  Receipt Date: 20080421
  Transmission Date: 20081010
  Serious: Yes (Other)
  Sender: FDA-Public Use
  Company Number: US-ELI_LILLY_AND_COMPANY-US200802006027

PATIENT
  Sex: Female

DRUGS (2)
  1. FORTEO [Suspect]
     Indication: FRACTURE
     Dosage: UNK, UNK
     Dates: start: 20080217, end: 20080301
  2. ANTIHYPERTENSIVES [Concomitant]

REACTIONS (7)
  - BLOOD PRESSURE INCREASED [None]
  - HEADACHE [None]
  - MALAISE [None]
  - MUSCLE SPASMS [None]
  - PAIN IN EXTREMITY [None]
  - SLEEP DISORDER [None]
  - TREMOR [None]
